FAERS Safety Report 6790146-5 (Version None)
Quarter: 2010Q2

REPORT INFORMATION
  Report Type: 
  Country: None (occurrence: None)
  Receive Date: 20100624
  Receipt Date: 20100611
  Transmission Date: 20101027
  Serious: Yes (Hospitalization, Other)
  Sender: FDA-Public Use
  Company Number: PHHY2010GB09645

PATIENT
  Sex: Male
  Weight: 85 kg

DRUGS (6)
  1. CLOZARIL [Suspect]
     Indication: SCHIZOPHRENIA
     Dosage: 400 MG, UNK
     Route: 048
     Dates: start: 19940101
  2. CLOZARIL [Suspect]
     Indication: BIPOLAR DISORDER
     Dosage: 600 MG DAILY
     Route: 048
     Dates: start: 20020918, end: 20100201
  3. VENLAFAXINE [Concomitant]
     Indication: AFFECTIVE DISORDER
     Dosage: 112.5 MG, UNK
     Route: 048
     Dates: start: 19980101
  4. VALPROATE SODIUM [Concomitant]
     Indication: AFFECTIVE DISORDER
     Dosage: 1 G, UNK
     Route: 048
     Dates: start: 19980101
  5. LAMOTRIGINE [Concomitant]
     Indication: AFFECTIVE DISORDER
     Dosage: 100 MG, UNK
     Route: 048
     Dates: start: 19980101
  6. LITHIUM CARBONATE [Concomitant]
     Indication: AFFECTIVE DISORDER
     Dosage: 600 MG, UNK
     Route: 048
     Dates: start: 19980101

REACTIONS (7)
  - ALCOHOL ABUSE [None]
  - BLOOD PRESSURE FLUCTUATION [None]
  - CIRCULATORY COLLAPSE [None]
  - COGNITIVE DISORDER [None]
  - MEMORY IMPAIRMENT [None]
  - ORTHOSTATIC HYPOTENSION [None]
  - TREATMENT NONCOMPLIANCE [None]
